FAERS Safety Report 25699328 (Version 1)
Quarter: 2025Q3

REPORT INFORMATION
  Report Type: Report from Study
  Country: CA (occurrence: CA)
  Receive Date: 20250819
  Receipt Date: 20250819
  Transmission Date: 20251021
  Serious: Yes (Death, Hospitalization, Other)
  Sender: BRISTOL-MYERS SQUIBB COMPANY
  Company Number: CA-BRISTOL-MYERS SQUIBB COMPANY-2025-112362

PATIENT
  Age: 77 Year
  Sex: Male

DRUGS (8)
  1. AZACITIDINE [Suspect]
     Active Substance: AZACITIDINE
     Indication: Acute myeloid leukaemia
  2. AZACITIDINE [Suspect]
     Active Substance: AZACITIDINE
  3. VENETOCLAX [Concomitant]
     Active Substance: VENETOCLAX
     Indication: Acute myeloid leukaemia
     Route: 048
  4. VENETOCLAX [Concomitant]
     Active Substance: VENETOCLAX
     Route: 048
  5. VENETOCLAX [Concomitant]
     Active Substance: VENETOCLAX
     Route: 048
  6. VENETOCLAX [Concomitant]
     Active Substance: VENETOCLAX
     Route: 048
  7. VENETOCLAX [Concomitant]
     Active Substance: VENETOCLAX
     Route: 048
  8. VENETOCLAX [Concomitant]
     Active Substance: VENETOCLAX
     Route: 048

REACTIONS (1)
  - Febrile neutropenia [Fatal]
